FAERS Safety Report 9863802 (Version 3)
Quarter: 2014Q1

REPORT INFORMATION
  Report Type: Spontaneous
  Country: DE (occurrence: DE)
  Receive Date: 20140203
  Receipt Date: 20140304
  Transmission Date: 20141002
  Serious: Yes (Other)
  Sender: FDA-Public Use
  Company Number: DE-UCBSA-110822

PATIENT
  Age: 17 Year
  Sex: Male

DRUGS (4)
  1. KEPPRA [Suspect]
     Dates: start: 201310
  2. PHOSPHATE [Suspect]
     Dosage: FOR ONE WEEK
     Dates: start: 201312, end: 201312
  3. POTASSIUM [Concomitant]
     Indication: ELECTROLYTE IMBALANCE
  4. MAGNESIUM [Concomitant]
     Indication: ELECTROLYTE IMBALANCE
     Dosage: UNKNOWN DOSE

REACTIONS (1)
  - Epilepsy [Recovered/Resolved]
